FAERS Safety Report 9684086 (Version 1)
Quarter: 2013Q4

REPORT INFORMATION
  Report Type: Spontaneous
  Country: IT (occurrence: IT)
  Receive Date: 20131112
  Receipt Date: 20131112
  Transmission Date: 20140711
  Serious: Yes (Hospitalization)
  Sender: FDA-Public Use
  Company Number: IT-TEVA-443223ISR

PATIENT
  Age: 55 Year
  Sex: Female

DRUGS (2)
  1. BROMAZEPAM [Suspect]
     Dosage: 20 ML DAILY;
     Route: 048
     Dates: start: 20130527, end: 20130527
  2. SERTRALINA [Suspect]
     Dosage: 500 MILLIGRAM DAILY;
     Route: 048
     Dates: start: 20130527, end: 20130527

REACTIONS (3)
  - Sopor [Recovered/Resolved]
  - Drug abuse [Recovered/Resolved]
  - Intentional self-injury [Recovered/Resolved]
